FAERS Safety Report 21533351 (Version 1)
Quarter: 2022Q4

REPORT INFORMATION
  Report Type: Spontaneous
  Country: US (occurrence: US)
  Receive Date: 20221101
  Receipt Date: 20221101
  Transmission Date: 20230113
  Serious: Yes (Other)
  Sender: FDA-Public Use
  Company Number: US-BAYER-2022A144156

PATIENT
  Sex: Male

DRUGS (1)
  1. ALKA-SELTZER PLUS SEVERE COLD POWERFAST FIZZ NIGHT [Suspect]
     Active Substance: ASPIRIN\DEXTROMETHORPHAN HYDROBROMIDE\DOXYLAMINE SUCCINATE\PHENYLEPHRINE BITARTRATE
     Dosage: UNK
     Route: 048

REACTIONS (1)
  - Haemorrhage [Unknown]
